FAERS Safety Report 9904305 (Version 1)
Quarter: 2014Q1

REPORT INFORMATION
  Report Type: Spontaneous
  Country: US (occurrence: US)
  Receive Date: 20140218
  Receipt Date: 20140218
  Transmission Date: 20141002
  Serious: No
  Sender: FDA-Public Use
  Company Number: US-PFIZER INC-2014044796

PATIENT
  Age: 59 Year
  Sex: Female
  Weight: 68.93 kg

DRUGS (6)
  1. CHANTIX [Suspect]
     Indication: SMOKING CESSATION THERAPY
     Dosage: 0.5 MG, DAILY
     Dates: start: 201311
  2. CHANTIX [Suspect]
     Dosage: 0.5 MG, 2X/DAY
  3. CHANTIX [Suspect]
     Dosage: 1 MG, 2X/DAY
  4. NOVOLOG [Concomitant]
     Indication: DIABETES MELLITUS
     Dosage: 10 IU, 3X/DAY
  5. VITAMIN B12 [Concomitant]
     Dosage: 1000 UG, DAILY
  6. VITAMIN D3 [Concomitant]
     Dosage: 1000 IU, DAILY

REACTIONS (3)
  - Pre-existing condition improved [Unknown]
  - Energy increased [Unknown]
  - Therapeutic response unexpected [Unknown]
